FAERS Safety Report 5961743-1 (Version None)
Quarter: 2008Q4

REPORT INFORMATION
  Report Type: 
  Country: None (occurrence: None)
  Receive Date: 20081121
  Receipt Date: 20081027
  Transmission Date: 20090506
  Serious: Yes (Hospitalization)
  Sender: FDA-Public Use
  Company Number: JP-BIOGENIDEC-2007BI023371

PATIENT
  Age: 6 Year
  Sex: Female

DRUGS (8)
  1. AVONEX [Suspect]
     Indication: RELAPSING-REMITTING MULTIPLE SCLEROSIS
     Route: 030
     Dates: start: 20071006, end: 20071026
  2. AVONEX [Suspect]
     Indication: MULTIPLE SCLEROSIS RELAPSE
     Route: 030
     Dates: start: 20071006, end: 20071026
  3. AVONEX [Suspect]
     Route: 030
     Dates: start: 20080121, end: 20080128
  4. AVONEX [Suspect]
     Route: 030
     Dates: start: 20080121, end: 20080128
  5. ALENDRONATE SODIUM [Concomitant]
     Dates: start: 20060911
  6. ALENDRONATE SODIUM [Concomitant]
     Dates: start: 20060911
  7. FAMOTIDINE [Concomitant]
     Indication: DRUG USE FOR UNKNOWN INDICATION
     Dates: start: 20060911
  8. NOVANTRONE [Concomitant]
     Indication: DRUG USE FOR UNKNOWN INDICATION
     Dates: start: 20061113, end: 20071112

REACTIONS (5)
  - INFLUENZA LIKE ILLNESS [None]
  - NASOPHARYNGITIS [None]
  - TONIC CONVULSION [None]
  - VIRAL UPPER RESPIRATORY TRACT INFECTION [None]
  - VOMITING [None]
